FAERS Safety Report 5628076-4 (Version None)
Quarter: 2008Q1

REPORT INFORMATION
  Report Type: 
  Country: None (occurrence: None)
  Receive Date: 20080215
  Receipt Date: 20080207
  Transmission Date: 20080703
  Serious: Yes (Hospitalization)
  Sender: FDA-Public Use
  Company Number: US-AMGEN-US257512

PATIENT
  Sex: Male

DRUGS (3)
  1. PROCRIT [Suspect]
     Indication: MYELODYSPLASTIC SYNDROME
     Route: 058
     Dates: start: 20070221, end: 20070910
  2. ANAGRELIDE HCL [Suspect]
  3. COUMADIN [Concomitant]
     Dates: start: 20060501

REACTIONS (1)
  - PULMONARY EMBOLISM [None]
